FAERS Safety Report 9141899 (Version 2)
Quarter: 2013Q2

REPORT INFORMATION
  Report Type: Spontaneous
  Country: US (occurrence: US)
  Receive Date: 20130305
  Receipt Date: 20130404
  Transmission Date: 20140414
  Serious: No
  Sender: FDA-Public Use
  Company Number: US-AMGEN-USASP2013011464

PATIENT
  Age: 58 Year
  Sex: Female
  Weight: 126.8 kg

DRUGS (13)
  1. ENBREL [Suspect]
     Indication: RHEUMATOID ARTHRITIS
     Dosage: 50 MG, QWK
     Route: 058
     Dates: start: 201207, end: 201302
  2. ASPIRIN [Concomitant]
     Dosage: 81 MG, QD
     Route: 048
  3. CLONIDINE [Concomitant]
     Dosage: 0.1 MG, QD
     Route: 048
  4. DIOVAN [Concomitant]
     Dosage: 320 MG, QD
     Route: 048
  5. DOCUSATE SODIUM [Concomitant]
     Dosage: 100 MG, QD
     Route: 048
  6. FUROSEMIDE [Concomitant]
     Dosage: 20 MG, QD
     Route: 048
  7. GLIMEPIRIDE [Concomitant]
     Dosage: 4 MG, BID
     Route: 048
  8. JANUVIA [Concomitant]
     Dosage: 25 MG, UNK
     Route: 048
  9. LANTUS [Concomitant]
     Dosage: 100 UNITS/ML AS DIRECTED
  10. LIPITOR [Concomitant]
     Dosage: 20 MG, QD
     Route: 048
  11. METFORMIN [Concomitant]
     Dosage: 500 MG, 4 TABLETS QD
     Route: 048
  12. SERTRALINE [Concomitant]
     Dosage: 50 MG, QD
     Route: 048
  13. VITAMIN D3 [Concomitant]
     Dosage: 1000 UNIT, QD

REACTIONS (2)
  - Cataract [Not Recovered/Not Resolved]
  - Drug ineffective [Unknown]
